FAERS Safety Report 11681620 (Version 1)
Quarter: 2015Q4

REPORT INFORMATION
  Report Type: Spontaneous
  Country: CA (occurrence: CA)
  Receive Date: 20151029
  Receipt Date: 20151029
  Transmission Date: 20160304
  Serious: Yes (Other)
  Sender: FDA-Public Use
  Company Number: CA-ROCHE-1652148

PATIENT
  Age: 42 Year
  Sex: Female

DRUGS (1)
  1. XOLAIR [Suspect]
     Active Substance: OMALIZUMAB
     Indication: ASTHMA
     Route: 058
     Dates: start: 20130215

REACTIONS (10)
  - Pneumonia [Unknown]
  - Bronchitis [Unknown]
  - Headache [Recovered/Resolved]
  - Gastroenteritis [Unknown]
  - Malaise [Unknown]
  - Limb discomfort [Recovered/Resolved]
  - Rhinorrhoea [Unknown]
  - Drug ineffective [Unknown]
  - Lung disorder [Unknown]
  - Sinusitis [Unknown]

NARRATIVE: CASE EVENT DATE: 20130217
